FAERS Safety Report 16032393 (Version 1)
Quarter: 2019Q1

REPORT INFORMATION
  Report Type: Spontaneous
  Country: ES (occurrence: ES)
  Receive Date: 20190304
  Receipt Date: 20190304
  Transmission Date: 20190418
  Serious: Yes (Hospitalization, Other)
  Sender: FDA-Public Use
  Company Number: ES-BRISTOL-MYERS SQUIBB COMPANY-BMS-2019-020184

PATIENT
  Age: 74 Year
  Sex: Female

DRUGS (6)
  1. METRONIDAZOL                       /00012501/ [Suspect]
     Active Substance: METRONIDAZOLE
     Indication: ABDOMINAL SEPSIS
     Dosage: 500 MG, 8 HOUR
     Route: 042
     Dates: start: 20140327, end: 20140401
  2. VANCOMICINA                        /00314401/ [Suspect]
     Active Substance: VANCOMYCIN
     Indication: ABDOMINAL SEPSIS
     Dosage: 1 G, 12 HOUR
     Route: 042
     Dates: start: 20140327, end: 20140329
  3. PARACETAMOL [Concomitant]
     Active Substance: ACETAMINOPHEN
     Indication: PAIN
     Dosage: 1 G, 8 HOUR
     Route: 042
  4. ENOXAPARINA [Concomitant]
     Active Substance: ENOXAPARIN
     Indication: THROMBOSIS PROPHYLAXIS
     Dosage: 40 MG, 1 DAY
     Route: 058
     Dates: start: 20140327
  5. PANTOPRAZOL                        /01263201/ [Concomitant]
     Active Substance: PANTOPRAZOLE
     Indication: PROPHYLAXIS AGAINST GASTROINTESTINAL ULCER
     Dosage: 40 MG, 1 DAY
     Route: 042
     Dates: start: 20140327
  6. AZTREONAM. [Suspect]
     Active Substance: AZTREONAM
     Indication: ABDOMINAL SEPSIS
     Dosage: 2 G, 8 HOUR
     Route: 042
     Dates: start: 20140327, end: 20140401

REACTIONS (1)
  - Acute generalised exanthematous pustulosis [Recovered/Resolved]

NARRATIVE: CASE EVENT DATE: 20140329
